FAERS Safety Report 8024517-6 (Version None)
Quarter: 2012Q1

REPORT INFORMATION
  Report Type: 
  Country: None (occurrence: None)
  Receive Date: 20120103
  Receipt Date: 20111216
  Transmission Date: 20120608
  Serious: Yes (Other)
  Sender: FDA-Public Use
  Company Number: 2011SP055189

PATIENT
  Sex: Female

DRUGS (2)
  1. NASONEX [Suspect]
     Indication: PRODUCT USED FOR UNKNOWN INDICATION
     Dosage: UNK;UNK
  2. DUROMINE [Concomitant]

REACTIONS (13)
  - TONGUE DISCOLOURATION [None]
  - ABDOMINAL DISCOMFORT [None]
  - ACTIVITIES OF DAILY LIVING IMPAIRED [None]
  - IMPAIRED WORK ABILITY [None]
  - WEIGHT DECREASED [None]
  - FATIGUE [None]
  - WRONG TECHNIQUE IN DRUG USAGE PROCESS [None]
  - APTYALISM [None]
  - DECREASED APPETITE [None]
  - PHARYNGEAL ULCERATION [None]
  - MEMORY IMPAIRMENT [None]
  - DRY THROAT [None]
  - TONGUE DRY [None]
